FAERS Safety Report 9782051 (Version 2)
Quarter: 2013Q4

REPORT INFORMATION
  Report Type: Report from Study
  Country: AR (occurrence: AR)
  Receive Date: 20131226
  Receipt Date: 20131230
  Transmission Date: 20140711
  Serious: Yes (Other)
  Sender: FDA-Public Use
  Company Number: AR-ROCHE-1325061

PATIENT
  Sex: Female

DRUGS (1)
  1. RANIBIZUMAB [Suspect]
     Indication: RETINAL HAEMORRHAGE
     Route: 050
     Dates: start: 20110225

REACTIONS (4)
  - Mental retardation [Recovering/Resolving]
  - Visual acuity reduced [Recovering/Resolving]
  - Drug ineffective [Unknown]
  - Hallucination [Unknown]
